FAERS Safety Report 24281299 (Version 1)
Quarter: 2024Q3

REPORT INFORMATION
  Report Type: Spontaneous
  Country: US (occurrence: US)
  Receive Date: 20240904
  Receipt Date: 20240904
  Transmission Date: 20241017
  Serious: Yes (Other)
  Sender: BAYER
  Company Number: US-BAYER-2024A126344

PATIENT
  Age: 32 Year
  Sex: Male

DRUGS (3)
  1. KOVALTRY [Suspect]
     Active Substance: ANTIHEMOPHILIC FACTOR, HUMAN RECOMBINANT
     Dosage: INFUSE 2000 UNITS (+/-10%) EVERY 12 TO 24 ,
  2. KOVALTRY [Suspect]
     Active Substance: ANTIHEMOPHILIC FACTOR, HUMAN RECOMBINANT
     Dosage: INFUSE 2000 UNITS (+/-10%) EVERY 12 TO 24 ,4 DF
  3. KOVALTRY [Suspect]
     Active Substance: ANTIHEMOPHILIC FACTOR, HUMAN RECOMBINANT
     Dosage: INFUSE 2000 UNITS (+/-10%) EVERY 12 TO 24 ,1 DF

REACTIONS (2)
  - Dental operation [None]
  - Joint injury [None]

NARRATIVE: CASE EVENT DATE: 20240827
